FAERS Safety Report 26070473 (Version 1)
Quarter: 2025Q4

REPORT INFORMATION
  Report Type: Spontaneous
  Country: CA (occurrence: None)
  Receive Date: 20251120
  Receipt Date: 20251120
  Transmission Date: 20260118
  Serious: No
  Sender: FDA-CTU
  Company Number: None

PATIENT
  Age: 55 Year
  Sex: Female
  Weight: 62.55 kg

DRUGS (4)
  1. WEGOVY [Suspect]
     Active Substance: SEMAGLUTIDE
     Indication: Weight control
     Route: 058
     Dates: start: 20251018
  2. TRINTELLIX [Concomitant]
     Active Substance: VORTIOXETINE HYDROBROMIDE
  3. Welbutrin (wegovy 0.5mg now) [Concomitant]
  4. chewable gummy vitamin supplement [Concomitant]

REACTIONS (3)
  - Vomiting [None]
  - Nausea [None]
  - Heart rate increased [None]

NARRATIVE: CASE EVENT DATE: 20251102
